FAERS Safety Report 8031157-1 (Version None)
Quarter: 2012Q1

REPORT INFORMATION
  Report Type: 
  Country: None (occurrence: None)
  Receive Date: 20120109
  Receipt Date: 20120102
  Transmission Date: 20120608
  Serious: Yes (Death, Other)
  Sender: FDA-Public Use
  Company Number: US-BAYER-2012-001462

PATIENT
  Age: 45 Year
  Sex: Female

DRUGS (5)
  1. CLONAZEPAM [Concomitant]
  2. LORAZEPAM [Concomitant]
  3. ACETYLSALICYLIC ACID SRT [Suspect]
     Dosage: 800 DF, UNK
     Route: 048
  4. CARBAMAZEPINE [Concomitant]
  5. PHENYTOIN [Concomitant]

REACTIONS (3)
  - TOXICITY TO VARIOUS AGENTS [None]
  - PULMONARY OEDEMA [None]
  - CARDIAC ARREST [None]
